FAERS Safety Report 8855832 (Version 1)
Quarter: 2012Q4

REPORT INFORMATION
  Report Type: Spontaneous
  Country: US (occurrence: None)
  Receive Date: 20121022
  Receipt Date: 20121022
  Transmission Date: 20130627
  Serious: No
  Sender: FDA-Public Use
  Company Number: None

PATIENT
  Age: 61 Year
  Sex: Male
  Weight: 81.65 kg

DRUGS (1)
  1. RAPAFLO [Suspect]
     Dosage: one capsule per day po
     Route: 048
     Dates: start: 20121007, end: 20121017

REACTIONS (2)
  - Dyspareunia [None]
  - Sperm concentration decreased [None]
